APPROVED DRUG PRODUCT: ETODOLAC
Active Ingredient: ETODOLAC
Strength: 200MG
Dosage Form/Route: CAPSULE;ORAL
Application: A205448 | Product #001 | TE Code: AB
Applicant: IPCA LABORATORIES LTD
Approved: Aug 1, 2024 | RLD: No | RS: No | Type: RX